FAERS Safety Report 22622329 (Version 1)
Quarter: 2023Q2

REPORT INFORMATION
  Report Type: Spontaneous
  Country: None (occurrence: CN)
  Receive Date: 20230620
  Receipt Date: 20230620
  Transmission Date: 20230721
  Serious: Yes (Hospitalization)
  Sender: FDA-Public Use
  Company Number: CN-Jiangsu Hengrui Medicine Co., Ltd.-2142944

PATIENT
  Age: 50 Year
  Sex: Male
  Weight: 53 kg

DRUGS (2)
  1. OXALIPLATIN [Suspect]
     Active Substance: OXALIPLATIN
     Indication: Rectal adenocarcinoma
     Route: 041
  2. CAPECITABINE [Concomitant]
     Active Substance: CAPECITABINE
     Route: 048

REACTIONS (1)
  - Hepatic cirrhosis [Recovering/Resolving]
